FAERS Safety Report 15168506 (Version 1)
Quarter: 2018Q3

REPORT INFORMATION
  Report Type: Spontaneous
  Country: GB (occurrence: GB)
  Receive Date: 20180719
  Receipt Date: 20180719
  Transmission Date: 20181010
  Serious: Yes (Other)
  Sender: FDA-Public Use
  Company Number: PHHY2018GB049993

PATIENT
  Age: 41 Year
  Sex: Female
  Weight: 121.56 kg

DRUGS (1)
  1. METRONIDAZOLE. [Suspect]
     Active Substance: METRONIDAZOLE
     Indication: PRODUCT USED FOR UNKNOWN INDICATION
     Dosage: 3 DF, QD,(3 UG/LITRE) FOR 5 DAYS
     Route: 048
     Dates: start: 20180424, end: 20180427

REACTIONS (2)
  - Chromaturia [Recovering/Resolving]
  - Dysuria [Recovering/Resolving]

NARRATIVE: CASE EVENT DATE: 20180425
